FAERS Safety Report 24058623 (Version 1)
Quarter: 2024Q3

REPORT INFORMATION
  Report Type: Spontaneous
  Country: US (occurrence: US)
  Receive Date: 20240708
  Receipt Date: 20240708
  Transmission Date: 20241017
  Serious: No
  Sender: AUROBINDO
  Company Number: US-AUROBINDO-AUR-APL-2024-014148

PATIENT
  Age: 45 Year
  Sex: Female
  Weight: 77.111 kg

DRUGS (5)
  1. VALACYCLOVIR [Suspect]
     Active Substance: VALACYCLOVIR HYDROCHLORIDE
     Indication: Oral herpes
     Dosage: UNK (ONE PILL TWICE A DAY. AND IF SHE HAS A BREAKOUT THEN SHE TAKES FOUR PILLS AT ONCE)
     Route: 065
  2. LEXAPRO [Concomitant]
     Active Substance: ESCITALOPRAM OXALATE
     Indication: Product used for unknown indication
     Dosage: UNK
     Route: 065
  3. FLUOCINOLONE ACETONIDE\HYDROQUINONE\TRETINOIN [Concomitant]
     Active Substance: FLUOCINOLONE ACETONIDE\HYDROQUINONE\TRETINOIN
     Indication: Product used for unknown indication
     Dosage: UNK
     Route: 065
  4. VITAMIN D [Concomitant]
     Active Substance: VITAMIN D NOS
     Indication: Product used for unknown indication
     Dosage: UNK
     Route: 065
  5. MAGNESIUM [Concomitant]
     Active Substance: MAGNESIUM
     Indication: Product used for unknown indication
     Dosage: UNK
     Route: 065

REACTIONS (6)
  - Blood test abnormal [Not Recovered/Not Resolved]
  - Blood chloride abnormal [Not Recovered/Not Resolved]
  - Condition aggravated [Unknown]
  - Carbon dioxide abnormal [Not Recovered/Not Resolved]
  - Product odour abnormal [Not Recovered/Not Resolved]
  - Product taste abnormal [Not Recovered/Not Resolved]
